FAERS Safety Report 4277415-8 (Version None)
Quarter: 2004Q1

REPORT INFORMATION
  Report Type: 
  Country: None (occurrence: None)
  Receive Date: 20040122
  Receipt Date: 20040121
  Transmission Date: 20041129
  Serious: Yes (Hospitalization)
  Sender: FDA-Public Use
  Company Number: US-GLAXOSMITHKLINE-A0494487A

PATIENT
  Sex: Female

DRUGS (7)
  1. AVANDIA [Suspect]
     Dosage: 1TAB PER DAY
     Route: 048
     Dates: start: 20030501, end: 20030501
  2. PREMARIN [Concomitant]
  3. LIPITOR [Concomitant]
  4. VICODIN [Concomitant]
  5. OXYCONTIN [Concomitant]
  6. COLACE [Concomitant]
  7. SENNA [Concomitant]

REACTIONS (3)
  - BALANCE DISORDER [None]
  - GASTROOESOPHAGEAL REFLUX DISEASE [None]
  - HEADACHE [None]
